FAERS Safety Report 8542440-5 (Version None)
Quarter: 2012Q3

REPORT INFORMATION
  Report Type: 
  Country: None (occurrence: None)
  Receive Date: 20120726
  Receipt Date: 20111213
  Transmission Date: 20120928
  Serious: Yes (Hospitalization, Other)
  Sender: FDA-Public Use
  Company Number: US-ASTRAZENECA-2006UW27580

PATIENT
  Age: 41 Year
  Sex: Male
  Weight: 112 kg

DRUGS (7)
  1. RISPERDAL [Suspect]
     Dates: start: 19960101, end: 19970101
  2. SEROQUEL [Suspect]
     Dosage: 25 MG, 100MG, 200MG, 300MG, 400MG
     Route: 048
     Dates: start: 20040101, end: 20050101
  3. SEROQUEL [Suspect]
     Indication: BIPOLAR DISORDER
     Dosage: 100-300MG
     Route: 048
     Dates: start: 20020403
  4. ZYPREXA [Suspect]
     Dates: start: 20000517, end: 20040101
  5. OXYCODONE AND ACETAMINOPHEN [Concomitant]
     Dosage: 5/325 TA
     Dates: start: 20001208
  6. WELLBUTRIN SR [Concomitant]
     Route: 048
     Dates: start: 20000416
  7. NEURONTIN [Concomitant]
     Dosage: 300MG- 400MG
     Route: 048
     Dates: start: 20020403

REACTIONS (4)
  - TYPE 2 DIABETES MELLITUS [None]
  - VISION BLURRED [None]
  - DIABETIC KETOACIDOSIS [None]
  - TYPE 1 DIABETES MELLITUS [None]
